FAERS Safety Report 4653389-2 (Version None)
Quarter: 2005Q2

REPORT INFORMATION
  Report Type: 
  Country: None (occurrence: None)
  Receive Date: 20050503
  Receipt Date: 20050426
  Transmission Date: 20051028
  Serious: Yes (Death)
  Sender: FDA-Public Use
  Company Number: 200510299BFR

PATIENT
  Age: 68 Year
  Sex: Female

DRUGS (3)
  1. MOXIFLOXACIN HYDROCHLORIDE [Suspect]
     Indication: PNEUMONITIS
     Dosage: ORAL
     Route: 048
     Dates: start: 20050210, end: 20050212
  2. ZINNAT [Concomitant]
  3. SOLUPRED [Concomitant]

REACTIONS (1)
  - SUDDEN DEATH [None]
